FAERS Safety Report 5754062-X (Version None)
Quarter: 2008Q2

REPORT INFORMATION
  Report Type: 
  Country: None (occurrence: None)
  Receive Date: 20080530
  Receipt Date: 20080522
  Transmission Date: 20081010
  Serious: Yes (Other)
  Sender: FDA-Public Use
  Company Number: PHEH2008US04826

PATIENT

DRUGS (1)
  1. COMTAN [Suspect]

REACTIONS (1)
  - GLAUCOMA [None]
